FAERS Safety Report 5627112-9 (Version None)
Quarter: 2008Q1

REPORT INFORMATION
  Report Type: 
  Country: None (occurrence: None)
  Receive Date: 20080215
  Receipt Date: 20080214
  Transmission Date: 20080703
  Serious: Yes (Life-Threatening, Hospitalization)
  Sender: FDA-Public Use
  Company Number: US-RB-009278-08

PATIENT
  Sex: Male
  Weight: 2.25 kg

DRUGS (3)
  1. SUBUTEX [Suspect]
     Route: 063
     Dates: start: 20080110, end: 20080203
  2. SUBUTEX [Suspect]
     Route: 064
     Dates: start: 20070501, end: 20070601
  3. SUBUTEX [Suspect]
     Route: 064
     Dates: start: 20070601, end: 20071229

REACTIONS (7)
  - APNOEA [None]
  - BRADYCARDIA [None]
  - DRUG EXPOSURE DURING PREGNANCY [None]
  - DRUG EXPOSURE VIA BREAST MILK [None]
  - GASTROOESOPHAGEAL REFLUX DISEASE [None]
  - PREMATURE BABY [None]
  - RESPIRATORY ARREST [None]
